FAERS Safety Report 9914315 (Version 1)
Quarter: 2014Q1

REPORT INFORMATION
  Report Type: Spontaneous
  Country: US (occurrence: None)
  Receive Date: 20140219
  Receipt Date: 20140219
  Transmission Date: 20141002
  Serious: Yes (Other)
  Sender: FDA-Public Use
  Company Number: None

PATIENT
  Age: 46 Year
  Sex: Male
  Weight: 68.04 kg

DRUGS (2)
  1. BUPROPION HCL [Suspect]
     Indication: DEPRESSION
     Dosage: 10 PILLS
     Route: 048
     Dates: start: 20131115, end: 20131128
  2. BUPROPION HCL [Suspect]
     Indication: BIPOLAR DISORDER
     Dosage: 10 PILLS
     Route: 048
     Dates: start: 20131115, end: 20131128

REACTIONS (7)
  - Nausea [None]
  - Abdominal pain upper [None]
  - Depression [None]
  - Apathy [None]
  - Suicidal ideation [None]
  - Pain [None]
  - Product substitution issue [None]
